FAERS Safety Report 7002436-1 (Version None)
Quarter: 2010Q3

REPORT INFORMATION
  Report Type: 
  Country: None (occurrence: None)
  Receive Date: 20100917
  Receipt Date: 20100917
  Transmission Date: 20110219
  Serious: Yes (Other)
  Sender: FDA-Public Use
  Company Number: None

PATIENT
  Age: 38 Year
  Sex: Female
  Weight: 52.1637 kg

DRUGS (1)
  1. METRONIDAZOLE [Suspect]
     Indication: VAGINAL DISORDER
     Dosage: FLAGYL ONE TIME DOSE VAGINAL GEL
     Route: 067
     Dates: start: 20100829

REACTIONS (8)
  - ANXIETY [None]
  - BURNING SENSATION [None]
  - CHEST PAIN [None]
  - DEPRESSION [None]
  - ERYTHEMA [None]
  - FLANK PAIN [None]
  - NEUROPATHY PERIPHERAL [None]
  - PALPITATIONS [None]
